FAERS Safety Report 17878157 (Version 2)
Quarter: 2020Q2

REPORT INFORMATION
  Report Type: Spontaneous
  Country: BR (occurrence: BR)
  Receive Date: 20200610
  Receipt Date: 20200611
  Transmission Date: 20200714
  Serious: No
  Sender: FDA-Public Use
  Company Number: BR-ADVANZ PHARMA-202005006108

PATIENT

DRUGS (16)
  1. HYDROXYCHLOROQUINE [Suspect]
     Active Substance: HYDROXYCHLOROQUINE
     Indication: ACUTE RESPIRATORY FAILURE
     Dosage: 400 MG, QD (ADJUSTED TO)
     Route: 048
     Dates: start: 20200413, end: 20200414
  2. AZITHROMYCIN ANHYDROUS. [Suspect]
     Active Substance: AZITHROMYCIN ANHYDROUS
     Indication: ACUTE RESPIRATORY FAILURE
  3. AMIODARONE HYDROCHLORIDE. [Concomitant]
     Active Substance: AMIODARONE HYDROCHLORIDE
     Dosage: UNK
     Dates: start: 20200411, end: 20200425
  4. LASIX [Concomitant]
     Active Substance: FUROSEMIDE
     Dosage: UNK
     Dates: start: 20200413, end: 20200414
  5. BROMOPRIDA [Concomitant]
     Dosage: UNK
     Dates: start: 20200414, end: 20200427
  6. MIDAZOLAM. [Concomitant]
     Active Substance: MIDAZOLAM
     Indication: SLEEP DISORDER
     Dosage: UNK
     Dates: start: 20200411, end: 20200419
  7. FENTANEST [Concomitant]
     Active Substance: FENTANYL CITRATE
     Dosage: UNK
     Dates: start: 20200411, end: 20200419
  8. ZINFORO [Concomitant]
     Active Substance: CEFTAROLINE FOSAMIL
     Dosage: UNK
     Dates: start: 20200412, end: 20200418
  9. NEXIUM [Concomitant]
     Active Substance: ESOMEPRAZOLE MAGNESIUM
     Dosage: UNK
     Dates: start: 20200413, end: 20200419
  10. CLEXANE [Concomitant]
     Active Substance: ENOXAPARIN SODIUM
     Dosage: UNK
     Dates: start: 20200411, end: 20200420
  11. LACTULONA [Concomitant]
     Dosage: UNK
     Dates: start: 20200414, end: 20200421
  12. NUJOL [Concomitant]
     Dosage: UNK
     Dates: start: 20200414, end: 20200420
  13. HYDROXYCHLOROQUINE [Suspect]
     Active Substance: HYDROXYCHLOROQUINE
     Indication: COVID-19
     Dosage: 400 MG, BID FILM COATED TABLET ON FIRST DAY
     Route: 048
     Dates: start: 20200412, end: 20200412
  14. NOREPINEPHRINE. [Concomitant]
     Active Substance: NOREPINEPHRINE
     Dosage: UNK
     Dates: start: 20200411, end: 20200418
  15. LUFTAL [Concomitant]
     Active Substance: DIMETHICONE
     Dosage: UNK
     Dates: start: 20200414, end: 20200424
  16. AZITHROMYCIN ANHYDROUS. [Suspect]
     Active Substance: AZITHROMYCIN ANHYDROUS
     Indication: COVID-19
     Dosage: 500 MG, QD, IV NOS
     Route: 042
     Dates: start: 20200411, end: 20200417

REACTIONS (2)
  - Off label use [Unknown]
  - No adverse event [Unknown]

NARRATIVE: CASE EVENT DATE: 20200412
